FAERS Safety Report 10039168 (Version 2)
Quarter: 2014Q1

REPORT INFORMATION
  Report Type: Spontaneous
  Country: IT (occurrence: IT)
  Receive Date: 20140326
  Receipt Date: 20140326
  Transmission Date: 20141002
  Serious: Yes (Hospitalization)
  Sender: FDA-Public Use
  Company Number: PHHY2013IT151593

PATIENT
  Age: 90 Year
  Sex: Female

DRUGS (1)
  1. ESIDREX [Suspect]
     Indication: HYPERTENSION
     Dosage: 25 MG, DAILY
     Route: 048

REACTIONS (1)
  - Hyponatraemic syndrome [Recovering/Resolving]
